FAERS Safety Report 8157746-1 (Version None)
Quarter: 2012Q1

REPORT INFORMATION
  Report Type: 
  Country: None (occurrence: None)
  Receive Date: 20120222
  Receipt Date: 20120221
  Transmission Date: 20120608
  Serious: Yes (Hospitalization, Other)
  Sender: FDA-Public Use
  Company Number: US-PFIZER INC-2012007679

PATIENT
  Sex: Male
  Weight: 72.56 kg

DRUGS (3)
  1. DILANTIN [Suspect]
     Indication: CONVULSION
     Dosage: 500 MG, ONCE AT NIGHT
     Route: 048
     Dates: start: 19930101
  2. LISINOPRIL [Concomitant]
     Indication: HYPERTENSION
     Dosage: 20 MG, 1X/DAY
  3. NEURONTIN [Suspect]
     Indication: CONVULSION
     Dosage: 3600 MG, ONCE IN MORNING
     Route: 048
     Dates: start: 19950101

REACTIONS (2)
  - MUSCLE STRAIN [None]
  - CARDIAC DISORDER [None]
